FAERS Safety Report 8193896-1 (Version None)
Quarter: 2012Q1

REPORT INFORMATION
  Report Type: 
  Country: None (occurrence: None)
  Receive Date: 20120308
  Receipt Date: 20120224
  Transmission Date: 20120608
  Serious: Yes (Hospitalization)
  Sender: FDA-Public Use
  Company Number: US-ACTELION-A-US2012-60780

PATIENT

DRUGS (12)
  1. AVELOX [Concomitant]
  2. LASIX [Concomitant]
  3. CYMBALTA [Concomitant]
  4. PREDNISONE TAB [Concomitant]
  5. ASPIRIN [Concomitant]
  6. TRACLEER [Suspect]
     Indication: PULMONARY ARTERIAL HYPERTENSION
     Dosage: 125 MG, BID
     Route: 048
     Dates: start: 20100319
  7. LAMICTAL [Concomitant]
  8. REVATIO [Concomitant]
  9. PROTONIX [Concomitant]
  10. ATIVAN [Concomitant]
  11. XOPENEX [Concomitant]
  12. REMODULIN [Concomitant]

REACTIONS (6)
  - SEPSIS [None]
  - ACUTE RESPIRATORY FAILURE [None]
  - PNEUMONIA [None]
  - DYSPNOEA [None]
  - BRONCHITIS [None]
  - WHEEZING [None]
